FAERS Safety Report 13562713 (Version 1)
Quarter: 2017Q2

REPORT INFORMATION
  Report Type: Spontaneous
  Country: US (occurrence: US)
  Receive Date: 20170518
  Receipt Date: 20170518
  Transmission Date: 20170830
  Serious: No
  Sender: FDA-Public Use
  Company Number: None

PATIENT
  Age: 82 Year
  Sex: Male

DRUGS (1)
  1. INSULIN [Suspect]
     Active Substance: INSULIN NOS
     Indication: DIABETES MELLITUS
     Dosage: 30 UNITS PM SQ
     Route: 058
     Dates: start: 20160114, end: 20170423

REACTIONS (3)
  - Hypoglycaemia [None]
  - Syncope [None]
  - Fall [None]

NARRATIVE: CASE EVENT DATE: 20170423
